FAERS Safety Report 10378419 (Version 2)
Quarter: 2014Q3

REPORT INFORMATION
  Report Type: Spontaneous
  Country: US (occurrence: US)
  Receive Date: 20140812
  Receipt Date: 20140916
  Transmission Date: 20150326
  Serious: Yes (Other)
  Sender: FDA-Public Use
  Company Number: US-TEVA-499898USA

PATIENT
  Sex: Male

DRUGS (1)
  1. COPAXONE [Suspect]
     Active Substance: GLATIRAMER ACETATE
     Dosage: UNKNOWN
     Route: 065

REACTIONS (9)
  - Injection site reaction [Unknown]
  - Gastric disorder [Unknown]
  - Arthropathy [Unknown]
  - JC virus infection [Unknown]
  - Appendicectomy [Unknown]
  - Rheumatoid arthritis [Unknown]
  - Ulcer [Unknown]
  - Malaise [Unknown]
  - Coordination abnormal [Unknown]

NARRATIVE: CASE EVENT DATE: 201308
